FAERS Safety Report 6596467-3 (Version None)
Quarter: 2010Q1

REPORT INFORMATION
  Report Type: 
  Country: None (occurrence: None)
  Receive Date: 20100223
  Receipt Date: 20100215
  Transmission Date: 20100710
  Serious: Yes (Death, Hospitalization, Other)
  Sender: FDA-Public Use
  Company Number: GB-AMGEN-QUU392721

PATIENT
  Age: 43 Year
  Sex: Female
  Weight: 88 kg

DRUGS (9)
  1. NEUPOGEN [Suspect]
     Indication: ACUTE MYELOID LEUKAEMIA
     Route: 058
  2. ARA-C [Suspect]
     Route: 042
  3. CLOFARABINE [Suspect]
  4. FLUDARA [Suspect]
     Route: 042
  5. MYLOTARG [Suspect]
     Route: 042
     Dates: start: 20090921, end: 20090921
  6. IDARUBICIN HCL [Suspect]
  7. AMBISOME [Concomitant]
  8. RASBURICASE [Concomitant]
  9. VALTREX [Concomitant]

REACTIONS (6)
  - DYSPNOEA [None]
  - METABOLIC ACIDOSIS [None]
  - MULTI-ORGAN FAILURE [None]
  - PERICARDITIS [None]
  - RENAL IMPAIRMENT [None]
  - SEPTIC SHOCK [None]
